FAERS Safety Report 7479435-9 (Version None)
Quarter: 2011Q2

REPORT INFORMATION
  Report Type: 
  Country: None (occurrence: None)
  Receive Date: 20110513
  Receipt Date: 20110512
  Transmission Date: 20111010
  Serious: Yes (Death)
  Sender: FDA-Public Use
  Company Number: VE-PFIZER INC-2011031196

PATIENT
  Age: 60 Year
  Sex: Female

DRUGS (1)
  1. LIPITOR [Suspect]
     Indication: HYPERCHOLESTEROLAEMIA
     Dosage: 80 MG, 1X/DAY
     Route: 048
     Dates: end: 20110302

REACTIONS (1)
  - RENAL FAILURE [None]
